FAERS Safety Report 10465741 (Version 1)
Quarter: 2014Q3

REPORT INFORMATION
  Report Type: Spontaneous
  Country: DK (occurrence: CH)
  Receive Date: 20140919
  Receipt Date: 20140919
  Transmission Date: 20150326
  Serious: Yes (Hospitalization)
  Sender: FDA-Public Use
  Company Number: CH-FRI-1000070843

PATIENT
  Sex: Male
  Weight: 88 kg

DRUGS (10)
  1. COMPETACT [Concomitant]
     Active Substance: METFORMIN HYDROCHLORIDE\PIOGLITAZONE HYDROCHLORIDE
     Dosage: 1 TABLET OF 850 MG METFORMIN HCI/15 MG PIOGLITAZONE HCI DAILY
     Route: 048
  2. PREDNISONE. [Concomitant]
     Active Substance: PREDNISONE
     Dosage: 10 MG DAILY
     Route: 048
     Dates: start: 20140512
  3. XGEVA [Concomitant]
     Active Substance: DENOSUMAB
     Dosage: 1 SINGLE SUBCUTANEOUS INJECTION EVERY 3 MONTHS
     Route: 058
     Dates: start: 20140210
  4. ESCITALOPRAM [Suspect]
     Active Substance: ESCITALOPRAM OXALATE
     Dosage: 10 MG DAILY
     Route: 048
     Dates: end: 20140721
  5. ASPIRIN CARDIO [Suspect]
     Active Substance: ASPIRIN
     Dosage: 100 MG DAILY
     Route: 048
  6. ZYTIGA [Concomitant]
     Active Substance: ABIRATERONE ACETATE
     Dosage: 1000 MG DAILY
     Route: 048
     Dates: start: 20140512
  7. AMARYL [Concomitant]
     Active Substance: GLIMEPIRIDE
     Dosage: 1 MG DAILY
     Route: 048
  8. LUCRIN DEPOT [Concomitant]
     Active Substance: LEUPROLIDE ACETATE
     Dosage: 1 PRE-FILLED SYRINGE EVERY 3 MONTHS
     Route: 058
  9. AMARYL [Concomitant]
     Active Substance: GLIMEPIRIDE
     Dosage: 2 MG DAILY
     Route: 048
  10. BELOC ZOK [Concomitant]
     Active Substance: METOPROLOL SUCCINATE
     Dosage: 25 MG DAILY
     Route: 048

REACTIONS (1)
  - Cerebral haemorrhage [Recovering/Resolving]

NARRATIVE: CASE EVENT DATE: 20140720
